FAERS Safety Report 10775353 (Version 4)
Quarter: 2015Q1

REPORT INFORMATION
  Report Type: Spontaneous
  Country: US (occurrence: None)
  Receive Date: 20150205
  Receipt Date: 20150226
  Transmission Date: 20150721
  Serious: Yes (Hospitalization)
  Sender: FDA-Public Use
  Company Number: AXC-2015-000052

PATIENT
  Age: 4 Month
  Sex: Male

DRUGS (4)
  1. AQUADEKS (MULTIVITAMINS) ORAL DROP [Suspect]
     Active Substance: MINERALS\VITAMINS
     Indication: CYSTIC FIBROSIS PANCREATIC
     Dates: start: 200702, end: 200707
  2. ULTRASE [Suspect]
     Active Substance: PANCRELIPASE
     Indication: CYSTIC FIBROSIS PANCREATIC
     Dosage: 2250 USP, PRIOR TO EACH FEEDING
     Dates: start: 200702, end: 200707
  3. ULTRASE [Suspect]
     Active Substance: PANCRELIPASE
     Indication: CYSTIC FIBROSIS PANCREATIC
     Dosage: 18000 USP, WITH MEALS
     Dates: start: 2008
  4. ULTRASE [Suspect]
     Active Substance: PANCRELIPASE
     Dosage: 18000 USP, WITH MEALS
     Dates: start: 2008

REACTIONS (24)
  - Vomiting [None]
  - Cystic fibrosis lung [None]
  - Growth retardation [None]
  - Stenotrophomonas test positive [None]
  - Vitamin D deficiency [None]
  - Disease progression [None]
  - Cough [None]
  - Hepatic enzyme increased [None]
  - Weight decreased [None]
  - Dermatitis diaper [None]
  - Ear infection [None]
  - Weight gain poor [None]
  - Steatorrhoea [None]
  - Rash maculo-papular [None]
  - Anaemia [None]
  - Haemophilus test positive [None]
  - Staphylococcus test positive [None]
  - Abdominal pain upper [None]
  - Hypotonia neonatal [None]
  - Pyrexia [None]
  - Cystic fibrosis [None]
  - Appetite disorder [None]
  - Diarrhoea [None]
  - Abdominal distension [None]

NARRATIVE: CASE EVENT DATE: 20070610
